FAERS Safety Report 11301714 (Version 1)
Quarter: 2015Q3

REPORT INFORMATION
  Report Type: Spontaneous
  Country: US (occurrence: US)
  Receive Date: 20150722
  Receipt Date: 20150722
  Transmission Date: 20151125
  Serious: No
  Sender: FDA-Public Use
  Company Number: US-ELI_LILLY_AND_COMPANY-US200903002256

PATIENT
  Sex: Female

DRUGS (10)
  1. SPIRONOLACTONE. [Concomitant]
     Active Substance: SPIRONOLACTONE
     Indication: OEDEMA
     Dosage: 100 MG, UNK
     Route: 048
     Dates: start: 20081218
  2. HUMATROPE [Suspect]
     Active Substance: SOMATROPIN
     Dosage: 0.6 MG, DAILY (1/D)
     Dates: start: 200810, end: 200901
  3. GLUMETZA [Concomitant]
     Active Substance: METFORMIN HYDROCHLORIDE
     Indication: GLUCOSE TOLERANCE IMPAIRED
     Dosage: 500 MG, UNK
     Route: 048
     Dates: start: 20080529
  4. HUMATROPE [Suspect]
     Active Substance: SOMATROPIN
     Dosage: 0.4 MG, DAILY (1/D)
     Dates: start: 200810, end: 200810
  5. HUMATROPE [Suspect]
     Active Substance: SOMATROPIN
     Dosage: 0.2 MG, DAILY (1/D)
     Dates: start: 20080901, end: 200810
  6. VITAMIN D                          /00107901/ [Concomitant]
     Active Substance: ERGOCALCIFEROL
     Indication: VITAMIN D DEFICIENCY
     Dosage: 50000 IU, UNK
     Route: 048
     Dates: start: 20081023
  7. BYETTA [Concomitant]
     Active Substance: EXENATIDE
     Indication: GLUCOSE TOLERANCE IMPAIRED
     Dosage: 5 UG, UNK
     Route: 030
     Dates: start: 20081212, end: 20090109
  8. HUMATROPE [Suspect]
     Active Substance: SOMATROPIN
     Dosage: 0.4 MG, DAILY (1/D)
     Dates: start: 200901, end: 200902
  9. TRYPHTOPHAN [Concomitant]
     Active Substance: TRYPTOPHAN
     Indication: INSOMNIA
     Dosage: 500 MG, UNK
     Route: 048
  10. HUMATROPE [Suspect]
     Active Substance: SOMATROPIN
     Dosage: 0.2 MG, DAILY (1/D)
     Dates: start: 200902

REACTIONS (7)
  - Swelling [Recovered/Resolved]
  - Glucose tolerance impaired [Unknown]
  - Hypertension [Not Recovered/Not Resolved]
  - Growth hormone deficiency [Unknown]
  - Hypoglycaemia [Unknown]
  - Insulin-like growth factor increased [Recovering/Resolving]
  - Tachycardia [Not Recovered/Not Resolved]
